FAERS Safety Report 18576775 (Version 1)
Quarter: 2020Q4

REPORT INFORMATION
  Report Type: Spontaneous
  Country: US (occurrence: MX)
  Receive Date: 20201203
  Receipt Date: 20201203
  Transmission Date: 20210114
  Serious: Yes (Other)
  Sender: FDA-Public Use
  Company Number: MX-BIOMARINAP-MX-2020-133646

PATIENT
  Age: 18 Year
  Sex: Male

DRUGS (1)
  1. ALDURAZYME [Suspect]
     Active Substance: LARONIDASE
     Indication: MUCOPOLYSACCHARIDOSIS I
     Dosage: UNK
     Route: 041
     Dates: start: 2017

REACTIONS (10)
  - Ocular icterus [Unknown]
  - Amnesia [Unknown]
  - Foot deformity [Unknown]
  - Gait disturbance [Unknown]
  - Hypoacusis [Unknown]
  - Sleep apnoea syndrome [Unknown]
  - Umbilical hernia [Unknown]
  - Aggression [Unknown]
  - Learning disorder [Unknown]
  - Hypersensitivity [Unknown]
